FAERS Safety Report 7313858-3 (Version None)
Quarter: 2011Q1

REPORT INFORMATION
  Report Type: 
  Country: None (occurrence: None)
  Receive Date: 20110225
  Receipt Date: 20110214
  Transmission Date: 20110831
  Serious: Yes (Other)
  Sender: FDA-Public Use
  Company Number: GB-SANOFI-AVENTIS-2011SA009838

PATIENT
  Sex: Male

DRUGS (2)
  1. METRONIDAZOLE [Suspect]
     Indication: ROSACEA
     Route: 061
  2. ALCOHOL [Suspect]
     Route: 048

REACTIONS (2)
  - ALCOHOL INTERACTION [None]
  - HEADACHE [None]
